FAERS Safety Report 6832147-4 (Version None)
Quarter: 2010Q3

REPORT INFORMATION
  Report Type: 
  Country: None (occurrence: None)
  Receive Date: 20100712
  Receipt Date: 20100628
  Transmission Date: 20110219
  Serious: Yes (Other)
  Sender: FDA-Public Use
  Company Number: US-ELI_LILLY_AND_COMPANY-US201006007600

PATIENT
  Sex: Female

DRUGS (2)
  1. HUMULIN 70/30 [Suspect]
     Indication: DIABETES MELLITUS
     Dosage: 35 U, UNKNOWN
  2. LANTUS [Concomitant]

REACTIONS (5)
  - ARTHRITIS [None]
  - CORONARY ARTERY BYPASS [None]
  - FOREIGN BODY [None]
  - INCORRECT DOSE ADMINISTERED [None]
  - SCAR [None]
